FAERS Safety Report 5938313-4 (Version None)
Quarter: 2008Q4

REPORT INFORMATION
  Report Type: 
  Country: None (occurrence: None)
  Receive Date: 20081103
  Receipt Date: 20081027
  Transmission Date: 20090506
  Serious: Yes (Hospitalization)
  Sender: FDA-Public Use
  Company Number: IT-SP-2008-02153

PATIENT
  Age: 66 Year
  Sex: Male

DRUGS (9)
  1. IMMUCYST [Suspect]
     Indication: BLADDER CANCER
     Route: 043
     Dates: start: 20070508, end: 20080416
  2. IMMUCYST [Suspect]
     Route: 043
     Dates: start: 20070508, end: 20080416
  3. CARVEDILOLO [Concomitant]
  4. TRIATEC [Concomitant]
  5. CRESTOR [Concomitant]
     Dates: end: 20080501
  6. ESKIM [Concomitant]
     Dosage: 1 TABLET/DAY
  7. ASPIRIN [Concomitant]
  8. HUMALOG [Concomitant]
  9. TERAZOSIN HCL [Concomitant]
     Indication: URINARY TRACT DISORDER

REACTIONS (6)
  - BOVINE TUBERCULOSIS [None]
  - BRONCHOPNEUMONIA [None]
  - GRANULOCYTOPENIA [None]
  - HEPATITIS [None]
  - HYPERPYREXIA [None]
  - JAUNDICE [None]
